FAERS Safety Report 23569074 (Version 1)
Quarter: 2024Q1

REPORT INFORMATION
  Report Type: Report from Study
  Country: US (occurrence: US)
  Receive Date: 20240227
  Receipt Date: 20240227
  Transmission Date: 20240410
  Serious: No
  Sender: FDA-Public Use
  Company Number: US-ORG100014127-2023000985

PATIENT
  Age: 49 Year
  Sex: Female

DRUGS (23)
  1. METOPIRONE [Suspect]
     Active Substance: METYRAPONE
     Indication: Adrenal gland cancer
     Dosage: 250 MG: 03 CAPSULES IN THE MORNING, 03 CAPSULE AT LUNCH, 3 CAPSULE IN THE EVENING.
     Route: 048
     Dates: start: 20210120
  2. CABOMETYX [Concomitant]
     Active Substance: CABOZANTINIB S-MALATE
     Indication: Product used for unknown indication
  3. Clobetasol gel 0.05% [Concomitant]
     Indication: Product used for unknown indication
  4. Dexamethasone tab 4mg [Concomitant]
     Indication: Product used for unknown indication
  5. ESCITALOPRAM [Concomitant]
     Active Substance: ESCITALOPRAM OXALATE
     Indication: Product used for unknown indication
  6. fludrocort tab 0.1mg [Concomitant]
     Indication: Product used for unknown indication
  7. FUROSEMIDE [Concomitant]
     Active Substance: FUROSEMIDE
     Indication: Product used for unknown indication
  8. hydrocort tab 20mg [Concomitant]
     Indication: Product used for unknown indication
  9. lactobacillu tab [Concomitant]
     Indication: Product used for unknown indication
  10. levothyroxin cap 75mcg [Concomitant]
     Indication: Product used for unknown indication
  11. lido/prilocn cre 2.5-2.5% [Concomitant]
     Indication: Product used for unknown indication
  12. liothyronine tab 5mcg [Concomitant]
     Indication: Product used for unknown indication
  13. lorazepam tab 0.5mg [Concomitant]
     Indication: Product used for unknown indication
  14. LYSODREN [Concomitant]
     Active Substance: MITOTANE
     Indication: Product used for unknown indication
  15. nitroglycern sub 0.4mg [Concomitant]
     Indication: Product used for unknown indication
  16. Nystatin sus 100000 [Concomitant]
     Indication: Product used for unknown indication
  17. Olanzapine tab 5mg [Concomitant]
     Indication: Product used for unknown indication
  18. OMEPRAZOLE [Concomitant]
     Active Substance: OMEPRAZOLE
     Indication: Product used for unknown indication
  19. ONDANSETRON [Concomitant]
     Active Substance: ONDANSETRON
     Indication: Product used for unknown indication
  20. prilosec otc tab 20mg [Concomitant]
     Indication: Product used for unknown indication
  21. Prochlorper tab 10mg [Concomitant]
     Indication: Product used for unknown indication
  22. TRAZODONE [Concomitant]
     Active Substance: TRAZODONE HYDROCHLORIDE
     Indication: Product used for unknown indication
  23. tretinoin cre 0.1% [Concomitant]
     Indication: Product used for unknown indication

REACTIONS (1)
  - Off label use [Unknown]

NARRATIVE: CASE EVENT DATE: 20210120
